FAERS Safety Report 24826818 (Version 2)
Quarter: 2025Q1

REPORT INFORMATION
  Report Type: Spontaneous
  Country: US (occurrence: US)
  Receive Date: 20250109
  Receipt Date: 20250122
  Transmission Date: 20250409
  Serious: Yes (Death)
  Sender: ROCHE
  Company Number: US-ROCHE-10000173597

PATIENT
  Age: 79 Year
  Sex: Female

DRUGS (1)
  1. ESBRIET [Suspect]
     Active Substance: PIRFENIDONE
     Indication: Idiopathic pulmonary fibrosis
     Route: 048
     Dates: start: 202403

REACTIONS (1)
  - Death [Fatal]

NARRATIVE: CASE EVENT DATE: 20241231
